FAERS Safety Report 23232808 (Version 1)
Quarter: 2023Q4

REPORT INFORMATION
  Report Type: Spontaneous
  Country: US (occurrence: US)
  Receive Date: 20231128
  Receipt Date: 20231128
  Transmission Date: 20240109
  Serious: Yes (Hospitalization, Other)
  Sender: FDA-Public Use
  Company Number: US-AMGEN-USASP2023208357

PATIENT
  Age: 48 Year
  Sex: Male

DRUGS (2)
  1. ADALIMUMAB [Suspect]
     Active Substance: ADALIMUMAB\ISOPROPYL ALCOHOL
     Indication: Hidradenitis
     Dosage: UNK
     Route: 065
  2. XGEVA [Suspect]
     Active Substance: DENOSUMAB
     Indication: Hypercalcaemia of malignancy
     Dosage: UNK
     Route: 065

REACTIONS (6)
  - Metastases to lymph nodes [Unknown]
  - Hypercalcaemia of malignancy [Recovering/Resolving]
  - Squamous cell carcinoma [Unknown]
  - Hidradenitis [Unknown]
  - Performance status decreased [Unknown]
  - COVID-19 [Unknown]
